FAERS Safety Report 8360333-3 (Version None)
Quarter: 2012Q2

REPORT INFORMATION
  Report Type: 
  Country: None (occurrence: None)
  Receive Date: 20120515
  Receipt Date: 20120510
  Transmission Date: 20120825
  Serious: No
  Sender: FDA-Public Use
  Company Number: US-PFIZER INC-2012115176

PATIENT
  Sex: Female
  Weight: 50.8 kg

DRUGS (2)
  1. EFFEXOR [Suspect]
     Indication: DEPRESSION
     Dosage: UNK
  2. EFFEXOR [Suspect]
     Dosage: 450 MG, DAILY
     Dates: end: 20120509

REACTIONS (3)
  - LIBIDO DECREASED [None]
  - VULVOVAGINAL DRYNESS [None]
  - ORGASM ABNORMAL [None]
